FAERS Safety Report 8265542-X (Version None)
Quarter: 2012Q2

REPORT INFORMATION
  Report Type: 
  Country: None (occurrence: None)
  Receive Date: 20120406
  Receipt Date: 20120402
  Transmission Date: 20120825
  Serious: Yes (Other)
  Sender: FDA-Public Use
  Company Number: US-PFIZER INC-2012083587

PATIENT
  Sex: Male

DRUGS (2)
  1. MORPHINE SULFATE [Interacting]
     Dosage: 50 MG, 2X/DAY
  2. LYRICA [Suspect]
     Indication: HYPOAESTHESIA
     Dosage: 200 MG, 2X/DAY
     Route: 048
     Dates: start: 20110101

REACTIONS (2)
  - DRUG INTERACTION [None]
  - VIITH NERVE PARALYSIS [None]
